FAERS Safety Report 4764404-X (Version None)
Quarter: 2005Q3

REPORT INFORMATION
  Report Type: 
  Country: None (occurrence: None)
  Receive Date: 20050906
  Receipt Date: 20050823
  Transmission Date: 20060218
  Serious: Yes (Other)
  Sender: FDA-Public Use
  Company Number: HQWYE518026JUL05

PATIENT

DRUGS (2)
  1. RAPAMUNE [Suspect]
     Indication: PROPHYLAXIS AGAINST TRANSPLANT REJECTION
     Dosage: ORAL
     Route: 048
  2. CYCLOSPORINE [Concomitant]

REACTIONS (8)
  - ASTHENIA [None]
  - CONDITION AGGRAVATED [None]
  - DRUG INTOLERANCE [None]
  - DYSGEUSIA [None]
  - HEADACHE [None]
  - MOUTH ULCERATION [None]
  - NEUTROPENIA [None]
  - OEDEMA PERIPHERAL [None]
